FAERS Safety Report 16647509 (Version 2)
Quarter: 2019Q3

REPORT INFORMATION
  Report Type: Spontaneous
  Country: US (occurrence: US)
  Receive Date: 20190730
  Receipt Date: 20190802
  Transmission Date: 20191004
  Serious: Yes (Other)
  Sender: FDA-Public Use
  Company Number: US-PFIZER INC-2019322894

PATIENT
  Sex: Male

DRUGS (1)
  1. ADVIL MIGRAINE [Suspect]
     Active Substance: IBUPROFEN
     Indication: MIGRAINE
     Dosage: 2 DF, 1X/DAY (2 ADVIL MIGRAINE TABLETS THAT MORNING, PRIOR TO WORK)

REACTIONS (3)
  - Disorientation [Unknown]
  - Confusional state [Unknown]
  - Somnolence [Unknown]
